FAERS Safety Report 23226724 (Version 1)
Quarter: 2023Q4

REPORT INFORMATION
  Report Type: Report from Study
  Country: CN (occurrence: CN)
  Receive Date: 20231124
  Receipt Date: 20231124
  Transmission Date: 20240110
  Serious: Yes (Other)
  Sender: FDA-Public Use
  Company Number: CN-SUN PHARMACEUTICAL INDUSTRIES LTD-2023R1-419843

PATIENT
  Age: 58 Year
  Sex: Male

DRUGS (2)
  1. DOCETAXEL [Suspect]
     Active Substance: DOCETAXEL\DOCETAXEL ANHYDROUS
     Indication: Gastric cancer
     Dosage: 5 CYCLES
     Route: 065
  2. RALTITREXED [Suspect]
     Active Substance: RALTITREXED
     Indication: Gastric cancer
     Dosage: 5 CYCLES
     Route: 065

REACTIONS (1)
  - Disease progression [Unknown]
